FAERS Safety Report 9800121 (Version 3)
Quarter: 2015Q3

REPORT INFORMATION
  Report Type: Spontaneous
  Country: US (occurrence: US)
  Receive Date: 20140106
  Receipt Date: 20150806
  Transmission Date: 20151125
  Serious: No
  Sender: FDA-Public Use
  Company Number: US-GILEAD-2010-0032178

PATIENT
  Age: 50 Year
  Sex: Female
  Weight: 106.59 kg

DRUGS (14)
  1. APAP W/BUTALBITAL [Concomitant]
  2. ACYCLOVIR. [Concomitant]
     Active Substance: ACYCLOVIR
  3. RISPERIDONE. [Concomitant]
     Active Substance: RISPERIDONE
  4. CARVEDILOL. [Concomitant]
     Active Substance: CARVEDILOL
  5. CLONAZEPAM. [Concomitant]
     Active Substance: CLONAZEPAM
  6. DIVALPROEX SODIUM. [Concomitant]
     Active Substance: DIVALPROEX SODIUM
  7. LETAIRIS [Suspect]
     Active Substance: AMBRISENTAN
     Indication: PULMONARY ARTERIAL HYPERTENSION
     Route: 048
     Dates: start: 20100907
  8. WARFARIN [Concomitant]
     Active Substance: WARFARIN
  9. OXYBUTYNIN [Concomitant]
     Active Substance: OXYBUTYNIN
  10. LETAIRIS [Suspect]
     Active Substance: AMBRISENTAN
     Route: 048
     Dates: start: 20101105
  11. FUROSEMIDE. [Concomitant]
     Active Substance: FUROSEMIDE
  12. METFORMIN HCL ER [Concomitant]
     Active Substance: METFORMIN HYDROCHLORIDE
  13. PHENOBARBITAL. [Concomitant]
     Active Substance: PHENOBARBITAL
  14. LEXAPRO [Concomitant]
     Active Substance: ESCITALOPRAM OXALATE

REACTIONS (3)
  - Dyspnoea [Unknown]
  - Oedema [Unknown]
  - Weight increased [Unknown]

NARRATIVE: CASE EVENT DATE: 20101105
